FAERS Safety Report 4327802-4 (Version None)
Quarter: 2004Q1

REPORT INFORMATION
  Report Type: 
  Country: None (occurrence: None)
  Receive Date: 20040325
  Receipt Date: 20040316
  Transmission Date: 20041129
  Serious: Yes (Other)
  Sender: FDA-Public Use
  Company Number: K200400397

PATIENT
  Age: 52 Year
  Sex: Female
  Weight: 67.1 kg

DRUGS (3)
  1. LEVOXYL [Suspect]
     Indication: HYPOTHYROIDISM
     Dosage: 50 MCG,QD,ORAL
     Route: 048
     Dates: start: 19990101
  2. IMMUNITY VITAMIN FORMULA [Concomitant]
  3. AVAPRO [Concomitant]

REACTIONS (3)
  - FATIGUE [None]
  - FEELING ABNORMAL [None]
  - PHARMACEUTICAL PRODUCT COMPLAINT [None]
